FAERS Safety Report 15772683 (Version 3)
Quarter: 2021Q4

REPORT INFORMATION
  Report Type: Spontaneous
  Country: US (occurrence: US)
  Receive Date: 20181228
  Receipt Date: 20211124
  Transmission Date: 20220303
  Serious: Yes (Other)
  Sender: FDA-Public Use
  Company Number: US-PFIZER INC-2018529438

PATIENT
  Age: 38 Year
  Sex: Female
  Weight: 90 kg

DRUGS (4)
  1. PRISTIQ EXTENDED-RELEASE [Suspect]
     Active Substance: DESVENLAFAXINE SUCCINATE
     Indication: Anxiety
     Dosage: 50 MG, 1X/DAY
     Route: 048
     Dates: start: 201403, end: 20181216
  2. PRISTIQ EXTENDED-RELEASE [Suspect]
     Active Substance: DESVENLAFAXINE SUCCINATE
     Indication: Adjustment disorder
     Dosage: 50 MG, 1X/DAY
     Route: 048
     Dates: start: 201812
  3. LISINOPRIL [Concomitant]
     Active Substance: LISINOPRIL
     Indication: Hypertension
     Dosage: 5 MG, 1X/DAY
     Dates: start: 201809
  4. METFORMIN [Concomitant]
     Active Substance: METFORMIN HYDROCHLORIDE
     Indication: Insulin resistance
     Dosage: 500 MG, 2X/DAY
     Dates: start: 201403

REACTIONS (7)
  - Hernia [Unknown]
  - Drug effective for unapproved indication [Unknown]
  - Off label use [Unknown]
  - Malaise [Not Recovered/Not Resolved]
  - Headache [Not Recovered/Not Resolved]
  - Hypersomnia [Unknown]
  - Lacrimation increased [Unknown]

NARRATIVE: CASE EVENT DATE: 20140301
